FAERS Safety Report 18069318 (Version 1)
Quarter: 2020Q3

REPORT INFORMATION
  Report Type: Spontaneous
  Country: NL (occurrence: NL)
  Receive Date: 20200725
  Receipt Date: 20200725
  Transmission Date: 20201103
  Serious: Yes (Other)
  Sender: FDA-Public Use
  Company Number: NVSC2020NL203313

PATIENT
  Sex: Female

DRUGS (2)
  1. VENLAFAXINE [Suspect]
     Active Substance: VENLAFAXINE HYDROCHLORIDE
     Indication: BORDERLINE PERSONALITY DISORDER
     Dosage: 75 MG, QD
     Route: 065
  2. QUETIAPINE. [Suspect]
     Active Substance: QUETIAPINE
     Indication: BORDERLINE PERSONALITY DISORDER
     Dosage: 50 MG, QD
     Route: 065

REACTIONS (2)
  - Foetal death [Unknown]
  - Maternal exposure during pregnancy [Unknown]
